FAERS Safety Report 6915218-3 (Version None)
Quarter: 2010Q3

REPORT INFORMATION
  Report Type: 
  Country: None (occurrence: None)
  Receive Date: 20100805
  Receipt Date: 20100805
  Transmission Date: 20110219
  Serious: Yes (Life-Threatening, Hospitalization)
  Sender: FDA-Public Use
  Company Number: None

PATIENT
  Age: 36 Year
  Sex: Male
  Weight: 102 kg

DRUGS (1)
  1. ENBREL [Suspect]
     Indication: ANKYLOSING SPONDYLITIS
     Dosage: 50MG WEEKLY SQ
     Route: 058

REACTIONS (3)
  - CENTRAL NERVOUS SYSTEM LESION [None]
  - MUSCULAR WEAKNESS [None]
  - SPINAL CORD NEOPLASM [None]
